FAERS Safety Report 8383394-4 (Version None)
Quarter: 2012Q2

REPORT INFORMATION
  Report Type: 
  Country: None (occurrence: None)
  Receive Date: 20120524
  Receipt Date: 20120514
  Transmission Date: 20120825
  Serious: Yes (Hospitalization)
  Sender: FDA-Public Use
  Company Number: GB-UCBSA-057539

PATIENT
  Sex: Female

DRUGS (12)
  1. VITAMIN B COMPLEX CAP [Concomitant]
     Dosage: 50 MG PER DAY
  2. LEVETIRACETAM [Suspect]
     Dosage: 250 MG IN MORNING
     Dates: start: 20040101
  3. LAMICTAL [Concomitant]
     Dosage: 250 MG AM, 300 MG PM
  4. ACETAMINOPHEN AND CODEINE PHOSPHATE [Concomitant]
  5. ACETAMINOPHEN W/ CODEINE [Concomitant]
  6. LEVETIRACETAM [Suspect]
     Dosage: 250 MG A DAY
     Dates: start: 20110701, end: 20110101
  7. LEVETIRACETAM [Suspect]
     Dosage: 250 MG AM ,125 MG PM
     Dates: start: 20101201
  8. LEVETIRACETAM [Suspect]
     Dosage: 500 MG A DAY
     Dates: start: 20040101, end: 20040101
  9. TRAMADOL HYDROCHLORIDE [Concomitant]
  10. VITAMIN B COMPLEX CAP [Concomitant]
     Dosage: 100 MG PER DAY
  11. LEVETIRACETAM [Suspect]
     Dosage: 125 MG AM, 250 MG PM
     Dates: start: 20111201
  12. TEGRETOL [Concomitant]
     Dosage: 1200 MG, PROLONGED RELEASE

REACTIONS (7)
  - MENTAL IMPAIRMENT [None]
  - HEADACHE [None]
  - MULTIPLE DRUG OVERDOSE [None]
  - COGNITIVE DISORDER [None]
  - SOMNOLENCE [None]
  - DRUG INEFFECTIVE [None]
  - FATIGUE [None]
